FAERS Safety Report 5480992-2 (Version None)
Quarter: 2007Q4

REPORT INFORMATION
  Report Type: 
  Country: None (occurrence: None)
  Receive Date: 20071004
  Receipt Date: 20070924
  Transmission Date: 20080405
  Serious: Yes (Other)
  Sender: FDA-Public Use
  Company Number: 100#03#2007-03722

PATIENT
  Age: 82 Year
  Sex: Female

DRUGS (4)
  1. SIMVASTATIN [Suspect]
     Indication: DRUG USE FOR UNKNOWN INDICATION
     Dosage: ORAL
     Route: 048
  2. PRAVASTATIN [Suspect]
     Indication: DRUG USE FOR UNKNOWN INDICATION
  3. ACETYLSALICYLIC ACID (ACETYLSALICYLIC ACID) (ACETYLSALICYLIC ACID) [Concomitant]
  4. LANSOPRAZOLE [Concomitant]

REACTIONS (4)
  - ANTINUCLEAR ANTIBODY POSITIVE [None]
  - CUTANEOUS LUPUS ERYTHEMATOSUS [None]
  - DIZZINESS [None]
  - LYMPHOPENIA [None]
